FAERS Safety Report 18586543 (Version 1)
Quarter: 2020Q4

REPORT INFORMATION
  Report Type: Spontaneous
  Country: US (occurrence: US)
  Receive Date: 20201207
  Receipt Date: 20201207
  Transmission Date: 20210114
  Serious: No
  Sender: FDA-Public Use
  Company Number: None

PATIENT
  Age: 49 Year
  Sex: Female
  Weight: 48.6 kg

DRUGS (2)
  1. VORICONAZOLE. [Suspect]
     Active Substance: VORICONAZOLE
     Indication: ASPERGILLUS INFECTION
     Dosage: ?          QUANTITY:1 TABLET(S);?
     Route: 048
     Dates: start: 20201030, end: 20201201
  2. VORICONAZOLE. [Suspect]
     Active Substance: VORICONAZOLE
     Indication: HAEMOPTYSIS
     Dosage: ?          QUANTITY:1 TABLET(S);?
     Route: 048
     Dates: start: 20201030, end: 20201201

REACTIONS (6)
  - Back pain [None]
  - Skin fissures [None]
  - Muscle spasms [None]
  - Skin exfoliation [None]
  - Vision blurred [None]
  - Headache [None]

NARRATIVE: CASE EVENT DATE: 20201116
